FAERS Safety Report 6000720-1 (Version None)
Quarter: 2008Q4

REPORT INFORMATION
  Report Type: 
  Country: None (occurrence: None)
  Receive Date: 20081211
  Receipt Date: 20081201
  Transmission Date: 20090506
  Serious: Yes (Congenital Anomaly, Other)
  Sender: FDA-Public Use
  Company Number: GXKR2008GB11467

PATIENT
  Sex: Female

DRUGS (4)
  1. VENLAFAXINE HCL [Suspect]
     Dosage: 200 MG, QD (MATERNAL DOSE), TRANSPLACENTAL
     Route: 064
  2. FERROUS SULPHATE (FERROUS SULFATE) [Concomitant]
  3. FOLIC ACID [Concomitant]
  4. SERTRALINE [Concomitant]

REACTIONS (2)
  - HAEMANGIOMA CONGENITAL [None]
  - MATERNAL DRUGS AFFECTING FOETUS [None]
